FAERS Safety Report 13708086 (Version 1)
Quarter: 2017Q2

REPORT INFORMATION
  Report Type: Spontaneous
  Country: US (occurrence: US)
  Receive Date: 20170630
  Receipt Date: 20170630
  Transmission Date: 20170830
  Serious: Yes (Other)
  Sender: FDA-Public Use
  Company Number: US-BAYER-2017-121712

PATIENT
  Sex: Female

DRUGS (3)
  1. ZEGERID OTC CAPSULES [Suspect]
     Active Substance: OMEPRAZOLE\SODIUM BICARBONATE
     Indication: GASTRIC PH DECREASED
     Dosage: UNK
  2. PRILOSEC [Suspect]
     Active Substance: OMEPRAZOLE MAGNESIUM
     Indication: GASTRIC PH DECREASED
  3. OMEPRAZOLE. [Suspect]
     Active Substance: OMEPRAZOLE

REACTIONS (13)
  - Acute kidney injury [Unknown]
  - Anxiety [Unknown]
  - Judgement impaired [None]
  - End stage renal disease [None]
  - Discomfort [None]
  - Anhedonia [None]
  - Chronic kidney disease [Unknown]
  - Emotional disorder [Unknown]
  - Pain [Unknown]
  - Tubulointerstitial nephritis [Unknown]
  - Renal impairment [None]
  - Renal injury [Unknown]
  - Physical disability [None]
